FAERS Safety Report 15908006 (Version 2)
Quarter: 2019Q1

REPORT INFORMATION
  Report Type: Spontaneous
  Country: US (occurrence: US)
  Receive Date: 20190204
  Receipt Date: 20190213
  Transmission Date: 20190417
  Serious: Yes (Other)
  Sender: FDA-Public Use
  Company Number: US-ASTRAZENECA-2018SF13461

PATIENT
  Age: 69 Year
  Sex: Female

DRUGS (18)
  1. NEXIUM [Suspect]
     Active Substance: ESOMEPRAZOLE MAGNESIUM
     Route: 048
     Dates: start: 20130425
  2. PREDNISONE. [Concomitant]
     Active Substance: PREDNISONE
  3. DOXYCYCLINE. [Concomitant]
     Active Substance: DOXYCYCLINE
  4. NYSTATIN. [Concomitant]
     Active Substance: NYSTATIN
  5. CEFDINIR. [Concomitant]
     Active Substance: CEFDINIR
  6. FLUTICASONE. [Concomitant]
     Active Substance: FLUTICASONE
  7. AMPICILLIN [Concomitant]
     Active Substance: AMPICILLIN
  8. CEPHALEXIN. [Concomitant]
     Active Substance: CEPHALEXIN
  9. LEVOFLOXACIN. [Concomitant]
     Active Substance: LEVOFLOXACIN
  10. CELEBREX [Concomitant]
     Active Substance: CELECOXIB
  11. AMLODIPINE [Concomitant]
     Active Substance: AMLODIPINE BESYLATE
  12. MOBIC [Concomitant]
     Active Substance: MELOXICAM
  13. OFLOXACIN. [Concomitant]
     Active Substance: OFLOXACIN
  14. NEXIUM [Suspect]
     Active Substance: ESOMEPRAZOLE MAGNESIUM
     Route: 048
     Dates: start: 2010, end: 2017
  15. ALBUTEROL. [Concomitant]
     Active Substance: ALBUTEROL
  16. INDOMETHACIN. [Concomitant]
     Active Substance: INDOMETHACIN
  17. FLUCONAZOLE. [Concomitant]
     Active Substance: FLUCONAZOLE
  18. MONTELUKAST [Concomitant]
     Active Substance: MONTELUKAST SODIUM

REACTIONS (4)
  - Hyperparathyroidism secondary [Unknown]
  - Chronic kidney disease [Unknown]
  - Acute kidney injury [Unknown]
  - Nephrogenic anaemia [Unknown]

NARRATIVE: CASE EVENT DATE: 2015
